FAERS Safety Report 7085768-0 (Version None)
Quarter: 2010Q4

REPORT INFORMATION
  Report Type: 
  Country: None (occurrence: None)
  Receive Date: 20101105
  Receipt Date: 20101026
  Transmission Date: 20110411
  Serious: Yes (Hospitalization, Other)
  Sender: FDA-Public Use
  Company Number: US-PFIZER INC-2010116335

PATIENT
  Sex: Female
  Weight: 58.957 kg

DRUGS (4)
  1. LYRICA [Suspect]
     Indication: NEUROPATHY PERIPHERAL
     Dosage: 150 MG, 3X/DAY
     Route: 048
     Dates: start: 20090101
  2. NEURONTIN [Suspect]
     Indication: NEUROPATHY PERIPHERAL
     Dosage: 600 MG, 3X/DAY
     Route: 048
     Dates: start: 20090101
  3. EFFEXOR [Suspect]
     Indication: NEUROPATHY PERIPHERAL
     Dosage: 37.5 MG, 2X/DAY
     Route: 048
     Dates: start: 20100101, end: 20100701
  4. METOPROLOL [Concomitant]
     Dosage: 25 MG, 4X/DAY
     Dates: start: 20100101, end: 20100101

REACTIONS (3)
  - BRONCHIAL HYPERREACTIVITY [None]
  - HYPERTENSION [None]
  - LOWER LIMB FRACTURE [None]
